FAERS Safety Report 8784394 (Version 1)
Quarter: 2012Q4

REPORT INFORMATION
  Report Type: Spontaneous
  Country: FR (occurrence: None)
  Receive Date: 20120830
  Receipt Date: 20120830
  Transmission Date: 20130627
  Serious: Yes (Other)
  Sender: FDA-Public Use
  Company Number: FK201202511

PATIENT
  Age: 53 Year
  Sex: Female

DRUGS (3)
  1. AZITHROMYCIN [Suspect]
  2. SPIRAMYCIN [Suspect]
  3. METRONIDAZOLE [Suspect]

REACTIONS (2)
  - Drug reaction with eosinophilia and systemic symptoms [None]
  - Histiocytosis haematophagic [None]
